FAERS Safety Report 6831134-X (Version None)
Quarter: 2010Q3

REPORT INFORMATION
  Report Type: 
  Country: None (occurrence: None)
  Receive Date: 20100712
  Receipt Date: 20100630
  Transmission Date: 20110219
  Serious: Yes (Other)
  Sender: FDA-Public Use
  Company Number: US-BAYER-201024839NA

PATIENT
  Age: 25 Year
  Sex: Female

DRUGS (2)
  1. BETASERON [Suspect]
     Indication: MULTIPLE SCLEROSIS
     Dosage: TOTAL DAILY DOSE: 8 MIU
     Route: 058
     Dates: start: 20100409, end: 20100601
  2. BETASERON [Suspect]
     Route: 058
     Dates: start: 20030315, end: 20050101

REACTIONS (3)
  - INJECTION SITE PAIN [None]
  - MUSCLE TIGHTNESS [None]
  - PAIN [None]
